FAERS Safety Report 11136940 (Version 1)
Quarter: 2015Q2

REPORT INFORMATION
  Report Type: Spontaneous
  Country: US (occurrence: US)
  Receive Date: 20150526
  Receipt Date: 20150526
  Transmission Date: 20150821
  Serious: No
  Sender: FDA-Public Use
  Company Number: US-BAYER-2015-273026

PATIENT
  Age: 82 Year
  Sex: Female
  Weight: 49.89 kg

DRUGS (5)
  1. CLARITIN REDITABS [Suspect]
     Active Substance: LORATADINE
     Indication: SEASONAL ALLERGY
     Dosage: 1 DF, ONCE
     Dates: start: 20150522, end: 20150522
  2. VITAMIIN C [Concomitant]
     Active Substance: ASCORBIC ACID
     Dosage: UNK
  3. FLAXSEED [Concomitant]
     Active Substance: FLAX SEED
     Dosage: UNK
  4. CENTRUM SILVER [Concomitant]
     Active Substance: VITAMINS
     Dosage: UNK
  5. VITAMIN E [TOCOPHEROL] [Concomitant]
     Dosage: UNK

REACTIONS (1)
  - Rash erythematous [Not Recovered/Not Resolved]

NARRATIVE: CASE EVENT DATE: 20150522
